FAERS Safety Report 8983330 (Version 1)
Quarter: 2012Q4

REPORT INFORMATION
  Report Type: 
  Country: CN (occurrence: CN)
  Receive Date: 20121221
  Receipt Date: 20121221
  Transmission Date: 20130627
  Serious: Yes (Other)
  Sender: FDA-Public Use
  Company Number: CN-ABBOTT-12P-035-1025126-00

PATIENT
  Age: 34 Year
  Sex: Female

DRUGS (1)
  1. DEPAKINE CHRONO [Suspect]
     Indication: EPILEPSY
     Route: 048
     Dates: start: 201210

REACTIONS (4)
  - Syncope [Unknown]
  - Convulsion [Unknown]
  - Epilepsy [Recovered/Resolved]
  - Drug ineffective [Unknown]
